FAERS Safety Report 4802361-8 (Version None)
Quarter: 2005Q4

REPORT INFORMATION
  Report Type: 
  Country: None (occurrence: None)
  Receive Date: 20051018
  Receipt Date: 20051007
  Transmission Date: 20060501
  Serious: Yes (Hospitalization)
  Sender: FDA-Public Use
  Company Number: SE-AMGEN-UK150617

PATIENT
  Sex: Female

DRUGS (11)
  1. NEUPOGEN [Suspect]
     Indication: AGRANULOCYTOSIS
     Route: 058
     Dates: start: 20050819, end: 20050821
  2. TIENAM [Suspect]
     Route: 042
     Dates: start: 20050814, end: 20050817
  3. CIPROXIN [Suspect]
     Route: 065
     Dates: start: 20050802, end: 20050813
  4. TOPIRAMATE [Concomitant]
     Route: 048
  5. FENEMAL [Concomitant]
     Route: 048
     Dates: start: 20050701
  6. VALPROATE SODIUM [Concomitant]
     Route: 048
  7. DIAZEPAM [Concomitant]
     Route: 065
     Dates: start: 20050701
  8. FOSPHENYTOIN SODIUM [Concomitant]
     Route: 065
     Dates: start: 20050701
  9. DIPRIVAN [Concomitant]
     Route: 065
     Dates: start: 20050701
  10. CLONAZEPAM [Concomitant]
     Route: 065
     Dates: start: 20050701
  11. ZINACEF [Concomitant]
     Route: 042
     Dates: start: 20050724, end: 20050731

REACTIONS (5)
  - PYREXIA [None]
  - RASH [None]
  - URTICARIA [None]
  - VASCULITIS [None]
  - WHITE BLOOD CELL COUNT INCREASED [None]
